FAERS Safety Report 18586663 (Version 1)
Quarter: 2020Q4

REPORT INFORMATION
  Report Type: Spontaneous
  Country: US (occurrence: US)
  Receive Date: 20201204
  Receipt Date: 20201204
  Transmission Date: 20210114
  Serious: No
  Sender: FDA-Public Use
  Company Number: None

PATIENT
  Age: 68 Year
  Sex: Female

DRUGS (1)
  1. OPSUMIT [Suspect]
     Active Substance: MACITENTAN
     Indication: PULMONARY HYPERTENSION
     Route: 048
     Dates: start: 20180713

REACTIONS (4)
  - Anxiety [None]
  - Ischaemia [None]
  - Palpitations [None]
  - Dyspnoea exertional [None]

NARRATIVE: CASE EVENT DATE: 20201204
